FAERS Safety Report 5989126-9 (Version None)
Quarter: 2008Q4

REPORT INFORMATION
  Report Type: 
  Country: None (occurrence: None)
  Receive Date: 20081210
  Receipt Date: 20081126
  Transmission Date: 20090506
  Serious: Yes (Hospitalization)
  Sender: FDA-Public Use
  Company Number: US-WATSON-2008-07043

PATIENT
  Age: 8 Year
  Sex: Male

DRUGS (3)
  1. PREDNISONE TAB [Suspect]
     Indication: SARCOIDOSIS
     Dosage: 1 MG/KG, DAILY
  2. METHYLPREDNISOLONE ACETATE [Suspect]
     Indication: ANTIINFLAMMATORY THERAPY
     Dosage: 10 MG/KG, DAY 1
     Route: 042
  3. METHYLPREDNISOLONE ACETATE [Suspect]
     Dosage: 5 MG/KG, DAY 2
     Route: 042

REACTIONS (1)
  - BONE INFARCTION [None]
